FAERS Safety Report 5393635-3 (Version None)
Quarter: 2007Q3

REPORT INFORMATION
  Report Type: 
  Country: None (occurrence: None)
  Receive Date: 20070723
  Receipt Date: 20061010
  Transmission Date: 20080115
  Serious: No
  Sender: FDA-Public Use
  Company Number: A0623082A

PATIENT
  Age: 76 Year
  Sex: Female

DRUGS (7)
  1. AVANDIA [Suspect]
     Dosage: 2MG PER DAY
     Route: 048
     Dates: start: 20060927, end: 20061005
  2. TENORMIN [Concomitant]
  3. ELAVIL [Concomitant]
  4. EYE DROPS [Concomitant]
  5. PREMARIN [Concomitant]
  6. MULTI-VITAMIN [Concomitant]
  7. VITAMIN E [Concomitant]

REACTIONS (1)
  - TONGUE BLACK HAIRY [None]
